FAERS Safety Report 6153461-4 (Version None)
Quarter: 2009Q2

REPORT INFORMATION
  Report Type: 
  Country: None (occurrence: None)
  Receive Date: 20090409
  Receipt Date: 20090409
  Transmission Date: 20091009
  Serious: No
  Sender: FDA-Public Use
  Company Number: None

PATIENT
  Age: 51 Year
  Sex: Male
  Weight: 101.1521 kg

DRUGS (1)
  1. CHERATUSSIN AC SYRUP QUALITEST [Suspect]
     Indication: COUGH
     Dosage: 1 TSPN 6 HRS PO
     Route: 048
     Dates: start: 20090407, end: 20090408

REACTIONS (2)
  - PRODUCT QUALITY ISSUE [None]
  - THERAPEUTIC RESPONSE UNEXPECTED [None]
